FAERS Safety Report 8060561-0 (Version None)
Quarter: 2012Q1

REPORT INFORMATION
  Report Type: 
  Country: None (occurrence: None)
  Receive Date: 20120120
  Receipt Date: 20120111
  Transmission Date: 20120608
  Serious: Yes (Other)
  Sender: FDA-Public Use
  Company Number: CHPA2012US001113

PATIENT
  Sex: Female

DRUGS (1)
  1. EXCEDRIN EXTRA STRENGTH TABLETS [Suspect]
     Indication: HEADACHE
     Dosage: 1-2 DF, UNK
     Route: 048

REACTIONS (7)
  - BACK DISORDER [None]
  - CONDITION AGGRAVATED [None]
  - ENERGY INCREASED [None]
  - UNDERDOSE [None]
  - HYPERTENSION [None]
  - ARTHRITIS [None]
  - INCORRECT DRUG ADMINISTRATION DURATION [None]
